FAERS Safety Report 21632339 (Version 1)
Quarter: 2022Q4

REPORT INFORMATION
  Report Type: Spontaneous
  Country: JP (occurrence: JP)
  Receive Date: 20221123
  Receipt Date: 20221123
  Transmission Date: 20230113
  Serious: No
  Sender: FDA-Public Use
  Company Number: JP-MSD-M2022-48870

PATIENT

DRUGS (1)
  1. LAGEVRIO [Suspect]
     Active Substance: MOLNUPIRAVIR
     Indication: COVID-19 treatment
     Dosage: WHEN THE PATIENT WAS AWAKE, TOOK ONE CAPSULE AT A TIME, 8 CAPSULES/DAY
     Route: 048

REACTIONS (1)
  - Product use issue [Unknown]
